FAERS Safety Report 5025097-X (Version None)
Quarter: 2006Q2

REPORT INFORMATION
  Report Type: 
  Country: None (occurrence: None)
  Receive Date: 20060609
  Receipt Date: 20060609
  Transmission Date: 20061013
  Serious: Yes (Hospitalization)
  Sender: FDA-Public Use
  Company Number: None

PATIENT
  Age: 63 Year
  Sex: Female
  Weight: 70.3075 kg

DRUGS (1)
  1. LIPITOR [Suspect]
     Indication: HYPERCHOLESTEROLAEMIA
     Dosage: 20 MG DAILY PO
     Route: 048
     Dates: start: 19940101, end: 20050430

REACTIONS (2)
  - GLOBAL AMNESIA [None]
  - TRANSIENT ISCHAEMIC ATTACK [None]
